FAERS Safety Report 7960406-0 (Version None)
Quarter: 2011Q4

REPORT INFORMATION
  Report Type: 
  Country: None (occurrence: None)
  Receive Date: 20111206
  Receipt Date: 20111126
  Transmission Date: 20120403
  Serious: Yes (Other)
  Sender: FDA-Public Use
  Company Number: DE-BRISTOL-MYERS SQUIBB COMPANY-16250334

PATIENT
  Sex: Male

DRUGS (2)
  1. TRUVADA [Suspect]
     Indication: HIV INFECTION
     Dates: start: 20080101
  2. SUSTIVA [Suspect]
     Indication: HIV INFECTION
     Dates: start: 20080101

REACTIONS (4)
  - DEPRESSION [None]
  - ANXIETY [None]
  - HEPATITIS C [None]
  - SLEEP DISORDER [None]
